FAERS Safety Report 18177943 (Version 4)
Quarter: 2021Q2

REPORT INFORMATION
  Report Type: Report from Study
  Country: US (occurrence: US)
  Receive Date: 20200821
  Receipt Date: 20210513
  Transmission Date: 20210717
  Serious: Yes (Life-Threatening, Hospitalization)
  Sender: FDA-Public Use
  Company Number: US-ROCHE-2660810

PATIENT
  Age: 66 Year
  Sex: Female
  Weight: 94.3 kg

DRUGS (7)
  1. PERTUZUMAB. [Suspect]
     Active Substance: PERTUZUMAB
     Route: 042
  2. WARFARIN [Suspect]
     Active Substance: WARFARIN
     Indication: BREAST CANCER METASTATIC
     Route: 065
  3. TRASTUZUMAB. [Suspect]
     Active Substance: TRASTUZUMAB
     Indication: BREAST CANCER METASTATIC
     Dosage: 8 MG/KG IV C1D1 ONLY?ON 08/JUL/2020, HE RECEIVED MOST RECENT DOSE OF TRASTUZUMAB (754.4 MG) PRIOR TO
     Route: 042
     Dates: start: 20200708
  4. TRASTUZUMAB. [Suspect]
     Active Substance: TRASTUZUMAB
     Route: 042
  5. PACLITAXEL. [Suspect]
     Active Substance: PACLITAXEL
     Indication: BREAST CANCER METASTATIC
     Dosage: ON 08/JUL/2020, HE RECEIVED MOST RECENT DOSE OF PACLITAXEL (164 MG) PRIOR TO ONSET OF SERIOUS ADVERS
     Route: 042
     Dates: start: 20200708
  6. PLACEBO [Suspect]
     Active Substance: UNSPECIFIED INGREDIENT
     Indication: BREAST CANCER METASTATIC
     Dosage: ON DAY 1 AND 22 ?ON 08/JUL/2020, HE RECEIVED MOST RECENT DOSE OF BLINDED ATEZOLIZUMAB
     Route: 042
     Dates: start: 20200708
  7. PERTUZUMAB. [Suspect]
     Active Substance: PERTUZUMAB
     Indication: BREAST CANCER METASTATIC
     Dosage: 840 MG IV C1D1 ONLY?ON 08/JUL/2020, HE RECEIVED MOST RECENT DOSE OF PERTUZUMAB (840 MG) PRIOR TO ONS
     Route: 042
     Dates: start: 20200708

REACTIONS (3)
  - Cardiac failure [Recovered/Resolved]
  - Pulmonary oedema [Recovered/Resolved]
  - Gastric haemorrhage [Recovered/Resolved]

NARRATIVE: CASE EVENT DATE: 20200710
